FAERS Safety Report 5483094-4 (Version None)
Quarter: 2007Q4

REPORT INFORMATION
  Report Type: 
  Country: None (occurrence: None)
  Receive Date: 20071009
  Receipt Date: 20070924
  Transmission Date: 20080405
  Serious: Yes (Hospitalization)
  Sender: FDA-Public Use
  Company Number: 070924-0000942

PATIENT
  Age: 38 Year
  Sex: Male

DRUGS (1)
  1. DESOXYN [Suspect]
     Indication: DRUG USE FOR UNKNOWN INDICATION

REACTIONS (6)
  - AORTIC DISSECTION [None]
  - BACK PAIN [None]
  - CEREBROVASCULAR ACCIDENT [None]
  - HYPERTENSIVE CRISIS [None]
  - RENAL FAILURE ACUTE [None]
  - VASCULAR PSEUDOANEURYSM [None]
